FAERS Safety Report 9957082 (Version 1)
Quarter: 2014Q1

REPORT INFORMATION
  Report Type: Report from Study
  Country: US (occurrence: US)
  Receive Date: 20140304
  Receipt Date: 20140304
  Transmission Date: 20141002
  Serious: No
  Sender: FDA-Public Use
  Company Number: US-ABBVIE-13P-163-1097702-00

PATIENT
  Age: 45 Year
  Sex: Female
  Weight: 118.04 kg

DRUGS (5)
  1. HUMIRA [Suspect]
     Indication: ANKYLOSING SPONDYLITIS
     Dates: start: 201303, end: 201303
  2. HUMIRA [Suspect]
     Dates: start: 201305, end: 201305
  3. HYDROCODONE [Concomitant]
     Indication: PAIN
  4. PREDNISONE [Concomitant]
     Indication: ANKYLOSING SPONDYLITIS
  5. PREDNISONE [Concomitant]
     Indication: ADRENAL INSUFFICIENCY

REACTIONS (4)
  - Drug administered at inappropriate site [Not Recovered/Not Resolved]
  - Injection site bruising [Recovered/Resolved]
  - Influenza [Recovered/Resolved]
  - Respiratory tract infection viral [Recovered/Resolved]
